FAERS Safety Report 21477254 (Version 1)
Quarter: 2022Q4

REPORT INFORMATION
  Report Type: Spontaneous
  Country: DE (occurrence: DE)
  Receive Date: 20221019
  Receipt Date: 20221019
  Transmission Date: 20230112
  Serious: Yes (Other)
  Sender: FDA-Public Use
  Company Number: DE-ROCHE-3187648

PATIENT
  Age: 53 Year
  Sex: Female

DRUGS (2)
  1. PACLITAXEL [Suspect]
     Active Substance: PACLITAXEL
     Indication: Triple negative breast cancer
     Dosage: 80 % OF THE RECOMMENDED DOSE IN COMBINATION WITH TECENTRIQ
     Route: 065
     Dates: start: 202206
  2. TECENTRIQ [Suspect]
     Active Substance: ATEZOLIZUMAB
     Indication: Triple negative breast cancer
     Dosage: IN COMBINATION WITH NAB-PACLITAXEL
     Route: 065
     Dates: start: 202206

REACTIONS (1)
  - Condition aggravated [Not Recovered/Not Resolved]
